FAERS Safety Report 9637104 (Version 1)
Quarter: 2013Q4

REPORT INFORMATION
  Report Type: Spontaneous
  Country: SE (occurrence: SE)
  Receive Date: 20131022
  Receipt Date: 20131022
  Transmission Date: 20140711
  Serious: Yes (Life-Threatening)
  Sender: FDA-Public Use
  Company Number: SE-BRISTOL-MYERS SQUIBB COMPANY-19534346

PATIENT
  Age: 72 Year
  Sex: Female

DRUGS (2)
  1. ORENCIA FOR INJ 250 MG/VIAL [Suspect]
     Indication: RHEUMATOID ARTHRITIS
     Route: 042
     Dates: start: 20130212, end: 20130829
  2. PREDNISOLONE [Concomitant]

REACTIONS (2)
  - Abdominal pain [Recovered/Resolved]
  - Diarrhoea haemorrhagic [Recovered/Resolved]
